FAERS Safety Report 18772209 (Version 4)
Quarter: 2021Q1

REPORT INFORMATION
  Report Type: Spontaneous
  Country: AR (occurrence: AR)
  Receive Date: 20210121
  Receipt Date: 20210303
  Transmission Date: 20210419
  Serious: Yes (Hospitalization, Other)
  Sender: FDA-Public Use
  Company Number: AR-VALIDUS PHARMACEUTICALS LLC-AR-2021VAL000037

PATIENT
  Age: 80 Year
  Sex: Male

DRUGS (4)
  1. LASIX [Suspect]
     Active Substance: FUROSEMIDE
     Indication: RENAL FAILURE
     Dosage: 40 MG, TID
     Route: 065
  2. LASIX [Suspect]
     Active Substance: FUROSEMIDE
     Dosage: 2 DF, QD,FOR A WEEK
     Route: 065
  3. LASIX [Suspect]
     Active Substance: FUROSEMIDE
     Dosage: 3 DF, QD, FOR 3 DAYS ACCORDING TO MEDICAL INSTRUCTIONS
     Route: 065
  4. LASIX [Suspect]
     Active Substance: FUROSEMIDE
     Dosage: 2.5 DF, QD FOR 3 DAYS
     Route: 065

REACTIONS (4)
  - Product use issue [Unknown]
  - Pulmonary hypertension [Recovering/Resolving]
  - Cardiac failure [Unknown]
  - Drug ineffective [Unknown]

NARRATIVE: CASE EVENT DATE: 20201210
